FAERS Safety Report 25279403 (Version 2)
Quarter: 2025Q2

REPORT INFORMATION
  Report Type: Spontaneous
  Country: JP (occurrence: JP)
  Receive Date: 20250507
  Receipt Date: 20250606
  Transmission Date: 20250716
  Serious: Yes (Other)
  Sender: NEUROCRINE BIOSCIENCES
  Company Number: JP-MTPC-MTPC2025-0007937

PATIENT
  Age: 39 Year
  Sex: Female

DRUGS (10)
  1. VALBENAZINE [Suspect]
     Active Substance: VALBENAZINE
     Indication: Tardive dyskinesia
     Route: 048
     Dates: start: 20250424
  2. VALBENAZINE [Suspect]
     Active Substance: VALBENAZINE
     Route: 048
  3. VALBENAZINE [Suspect]
     Active Substance: VALBENAZINE
     Route: 048
  4. VALBENAZINE [Suspect]
     Active Substance: VALBENAZINE
     Route: 048
  5. VALBENAZINE [Suspect]
     Active Substance: VALBENAZINE
     Route: 048
  6. VALBENAZINE [Suspect]
     Active Substance: VALBENAZINE
     Route: 048
  7. VALBENAZINE [Suspect]
     Active Substance: VALBENAZINE
     Route: 048
  8. VALBENAZINE [Suspect]
     Active Substance: VALBENAZINE
     Route: 048
  9. VALBENAZINE [Suspect]
     Active Substance: VALBENAZINE
     Route: 048
  10. ASENAPINE MALEATE [Concomitant]
     Active Substance: ASENAPINE MALEATE
     Indication: Schizophrenia
     Route: 048

REACTIONS (6)
  - Tardive dyskinesia [Recovering/Resolving]
  - Akathisia [Recovering/Resolving]
  - Hallucination [Recovering/Resolving]
  - Hallucination, auditory [Recovering/Resolving]
  - Salivary hypersecretion [Recovering/Resolving]
  - Wrong technique in product usage process [Unknown]
